FAERS Safety Report 8513797-6 (Version None)
Quarter: 2012Q3

REPORT INFORMATION
  Report Type: 
  Country: None (occurrence: None)
  Receive Date: 20120717
  Receipt Date: 20120712
  Transmission Date: 20120928
  Serious: No
  Sender: FDA-Public Use
  Company Number: US-BAYER-2012-070021

PATIENT
  Age: 39 Year
  Sex: Female

DRUGS (1)
  1. GADAVIST [Suspect]
     Indication: NUCLEAR MAGNETIC RESONANCE IMAGING
     Dosage: 6.2 ML, ONCE
     Dates: start: 20120710, end: 20120710

REACTIONS (4)
  - RASH [None]
  - SWELLING FACE [None]
  - NAUSEA [None]
  - FEELING HOT [None]
